FAERS Safety Report 16873772 (Version 2)
Quarter: 2019Q4

REPORT INFORMATION
  Report Type: Spontaneous
  Country: US (occurrence: US)
  Receive Date: 20191001
  Receipt Date: 20191007
  Transmission Date: 20200122
  Serious: Yes (Hospitalization, Other)
  Sender: FDA-Public Use
  Company Number: US-PFIZER INC-2019423736

PATIENT
  Age: 68 Year
  Sex: Female
  Weight: 68.4 kg

DRUGS (1)
  1. ESTRING [Suspect]
     Active Substance: ESTRADIOL
     Indication: ATROPHIC VULVOVAGINITIS
     Dosage: UNK (INSERTED EVERY 3 MONTHS)
     Dates: end: 2019

REACTIONS (3)
  - Deep vein thrombosis [Recovering/Resolving]
  - Lymphoedema [Unknown]
  - Pulmonary embolism [Recovering/Resolving]
